FAERS Safety Report 4590023-4 (Version None)
Quarter: 2005Q1

REPORT INFORMATION
  Report Type: 
  Country: None (occurrence: None)
  Receive Date: 20050218
  Receipt Date: 20050218
  Transmission Date: 20050727
  Serious: Yes (Other)
  Sender: FDA-Public Use
  Company Number: None

PATIENT
  Age: 32 Year
  Sex: Female
  Weight: 74.8435 kg

DRUGS (2)
  1. ADVAIR DISKUS 100/50 [Suspect]
     Dosage: ONCE  SID
     Dates: start: 20040604, end: 20040701
  2. ADVAIR DISKUS 100/50 [Suspect]
     Dosage: ONCE  SID
     Dates: start: 20050110, end: 20050114

REACTIONS (4)
  - ANOREXIA [None]
  - INSOMNIA [None]
  - NERVOUSNESS [None]
  - PSYCHOMOTOR HYPERACTIVITY [None]
